FAERS Safety Report 9714191 (Version 1)
Quarter: 2013Q4

REPORT INFORMATION
  Report Type: Spontaneous
  Country: US (occurrence: US)
  Receive Date: 20131126
  Receipt Date: 20131126
  Transmission Date: 20140711
  Serious: No
  Sender: FDA-Public Use
  Company Number: US-GILEAD-2008-0019194

PATIENT
  Age: 66 Year
  Sex: Male
  Weight: 90.72 kg

DRUGS (10)
  1. LETAIRIS [Suspect]
     Indication: PULMONARY ARTERIAL HYPERTENSION
     Route: 048
     Dates: start: 20081030
  2. SPIRIVA [Concomitant]
  3. ZYRTEC [Concomitant]
  4. ACCUPRIL [Concomitant]
  5. LASIX [Concomitant]
  6. GLUCOVANCE [Concomitant]
  7. ATIVAN [Concomitant]
  8. PREVACID [Concomitant]
  9. MUCINEX [Concomitant]
  10. FERROUS SULFATE [Concomitant]

REACTIONS (1)
  - Constipation [None]
